FAERS Safety Report 18969501 (Version 1)
Quarter: 2021Q1

REPORT INFORMATION
  Report Type: Spontaneous
  Country: US (occurrence: US)
  Receive Date: 20210304
  Receipt Date: 20210304
  Transmission Date: 20210420
  Serious: No
  Sender: FDA-Public Use
  Company Number: US-PFIZER INC-2021218923

PATIENT
  Age: 85 Year
  Sex: Female
  Weight: 58.97 kg

DRUGS (3)
  1. GABAPENTIN. [Suspect]
     Active Substance: GABAPENTIN
     Indication: NEUROPATHY PERIPHERAL
     Dosage: 400 MG
     Dates: start: 202102
  2. GABAPENTIN. [Suspect]
     Active Substance: GABAPENTIN
     Dosage: 600 MG
  3. GABAPENTIN. [Suspect]
     Active Substance: GABAPENTIN
     Indication: NEURALGIA
     Dosage: 300 MG, 1X/DAY AT NIGHT
     Route: 048
     Dates: start: 2020, end: 202102

REACTIONS (8)
  - Dyspnoea [Unknown]
  - Insomnia [Unknown]
  - Drug ineffective [Unknown]
  - Hypersensitivity [Unknown]
  - Headache [Unknown]
  - Dizziness [Unknown]
  - Pain [Unknown]
  - Spondylitis [Unknown]
